FAERS Safety Report 8612996-2 (Version None)
Quarter: 2012Q3

REPORT INFORMATION
  Report Type: 
  Country: None (occurrence: None)
  Receive Date: 20120822
  Receipt Date: 20120816
  Transmission Date: 20120928
  Serious: Yes (Other)
  Sender: FDA-Public Use
  Company Number: CA-PFIZER INC-2012201054

PATIENT
  Age: 74 Year
  Sex: Female

DRUGS (2)
  1. LYRICA [Suspect]
     Dosage: 25 MG, UNK
     Dates: start: 20120814, end: 20120801
  2. ATIVAN [Concomitant]
     Dosage: 0.5 MG, AS NEEDED

REACTIONS (3)
  - MUSCULAR WEAKNESS [None]
  - DYSSTASIA [None]
  - HYPERSOMNIA [None]
